FAERS Safety Report 6360626-5 (Version None)
Quarter: 2009Q3

REPORT INFORMATION
  Report Type: 
  Country: None (occurrence: None)
  Receive Date: 20090915
  Receipt Date: 20090902
  Transmission Date: 20100115
  Serious: Yes (Other)
  Sender: FDA-Public Use
  Company Number: OPER20090161

PATIENT
  Age: 33 Year
  Sex: Male
  Weight: 87.0906 kg

DRUGS (10)
  1. OPANA ER [Suspect]
     Indication: PAIN
     Dosage: 60 MG QAM AND QPM, 30 MG AT MIDDAY, PER ORAL, 30 MG, BID, PER ORAL
     Route: 048
     Dates: start: 20090812, end: 20090823
  2. OPANA ER [Suspect]
     Indication: PAIN
     Dosage: 60 MG QAM AND QPM, 30 MG AT MIDDAY, PER ORAL, 30 MG, BID, PER ORAL
     Route: 048
     Dates: start: 20090824, end: 20090825
  3. OPANA ER [Suspect]
     Indication: PAIN
     Dosage: 80 MG, BID, PER ORAL
     Route: 048
     Dates: start: 20090825, end: 20090827
  4. OXYCODONE HCL AND ACETAMINOPHEN [Suspect]
     Indication: BREAKTHROUGH PAIN
     Dosage: 10 TABLETS DAILY PRN, PER ORAL, 1-2 TABLETS TID PRN, PER ORAL
     Route: 048
     Dates: start: 19960101, end: 20090827
  5. OXYCODONE HCL AND ACETAMINOPHEN [Suspect]
     Indication: BREAKTHROUGH PAIN
     Dosage: 10 TABLETS DAILY PRN, PER ORAL, 1-2 TABLETS TID PRN, PER ORAL
     Route: 048
     Dates: start: 19960101
  6. NEURONTIN [Suspect]
     Indication: FIBROMYALGIA
     Dosage: 300 MG, DAILY, THEN INCREASED DOSE EVERY 3 DAYS, PER ORAL
     Route: 048
     Dates: start: 20090825
  7. AMBIEN [Suspect]
     Dosage: 10 MG, AT NIGHT, PER ORAL
     Route: 048
     Dates: start: 19990101
  8. SINGLET [Suspect]
     Indication: HYPERSENSITIVITY
     Dosage: 1 TABLET DAILY, PER ORAL
     Route: 048
     Dates: start: 19990101
  9. KLONOPIN [Suspect]
     Dosage: 1 MG, TID, PER ORAL
     Route: 048
     Dates: start: 20040101
  10. ZANAFLEX [Suspect]
     Indication: FIBROMYALGIA
     Dosage: 4 MG, BID, PER ORAL
     Route: 048
     Dates: start: 19960101

REACTIONS (11)
  - CONFUSIONAL STATE [None]
  - CONTUSION [None]
  - FACIAL BONES FRACTURE [None]
  - HAEMATEMESIS [None]
  - HEADACHE [None]
  - LOSS OF CONSCIOUSNESS [None]
  - NAUSEA [None]
  - NO THERAPEUTIC RESPONSE [None]
  - PERIORBITAL HAEMATOMA [None]
  - ROAD TRAFFIC ACCIDENT [None]
  - SKIN LACERATION [None]
